FAERS Safety Report 11117509 (Version 2)
Quarter: 2015Q2

REPORT INFORMATION
  Report Type: Report from Study
  Country: DE (occurrence: DE)
  Receive Date: 20150516
  Receipt Date: 20150601
  Transmission Date: 20150821
  Serious: Yes (Death, Hospitalization)
  Sender: FDA-Public Use
  Company Number: DE-B.I. PHARMACEUTICALS,INC./RIDGEFIELD-2015-BI-25660II

PATIENT
  Age: 64 Year
  Sex: Male
  Weight: 66.3 kg

DRUGS (8)
  1. SULTANOL [Concomitant]
     Active Substance: ALBUTEROL SULFATE
     Indication: ASTHMA
     Route: 065
     Dates: start: 1989
  2. CLEXANE [Concomitant]
     Active Substance: ENOXAPARIN SODIUM
     Indication: PULMONARY EMBOLISM
     Dosage: 160 MG
     Route: 048
     Dates: start: 20150204
  3. TALCID [Concomitant]
     Active Substance: HYDROTALCITE
     Indication: GASTROOESOPHAGEAL REFLUX DISEASE
     Route: 048
     Dates: start: 20150224
  4. BIBW 2992 [Suspect]
     Active Substance: AFATINIB
     Indication: PANCREATIC CARCINOMA METASTATIC
     Dosage: 30 MG
     Route: 048
     Dates: start: 20150430, end: 20150507
  5. GEMCITABINE [Suspect]
     Active Substance: GEMCITABINE\GEMCITABINE HYDROCHLORIDE
     Indication: PANCREATIC CARCINOMA METASTATIC
     Dosage: 1900 MG
     Route: 042
     Dates: start: 20150424, end: 20150424
  6. URIDIN [Concomitant]
     Indication: PALMAR-PLANTAR ERYTHRODYSAESTHESIA SYNDROME
     Dosage: FORMULATION: SALVE
     Route: 065
     Dates: start: 20150306
  7. MOVICOL [Concomitant]
     Active Substance: POLYETHYLENE GLYCOL 3350\POTASSIUM CHLORIDE\SODIUM BICARBONATE\SODIUM CHLORIDE
     Indication: CONSTIPATION
     Route: 065
     Dates: start: 20150430
  8. L-THYROXIN [Concomitant]
     Active Substance: LEVOTHYROXINE SODIUM
     Indication: HYPOTHYROIDISM
     Dosage: 75 MG
     Route: 048
     Dates: start: 2010

REACTIONS (3)
  - Malignant neoplasm progression [Fatal]
  - Jaundice [Unknown]
  - Cholecystitis [Unknown]

NARRATIVE: CASE EVENT DATE: 20150508
